FAERS Safety Report 8144813-1 (Version None)
Quarter: 2012Q1

REPORT INFORMATION
  Report Type: 
  Country: None (occurrence: None)
  Receive Date: 20120217
  Receipt Date: 20120208
  Transmission Date: 20120608
  Serious: Yes (Hospitalization)
  Sender: FDA-Public Use
  Company Number: JP-SANOFI-AVENTIS-2012SA001278

PATIENT
  Age: 54 Year
  Sex: Female
  Weight: 75.6 kg

DRUGS (14)
  1. CYCLOPHOSPHAMIDE [Suspect]
     Indication: CHEMOTHERAPY
     Route: 041
     Dates: start: 20111108
  2. KYTRIL [Concomitant]
     Indication: PREMEDICATION
     Dosage: 1 PACKAGE
  3. ALL OTHER THERAPEUTIC PRODUCTS [Concomitant]
     Dates: start: 20111130, end: 20111204
  4. TAXOTERE [Suspect]
     Dosage: FORM: FOR DRIP INFUSION
     Route: 041
     Dates: start: 20111130
  5. CYCLOPHOSPHAMIDE [Suspect]
     Route: 041
     Dates: start: 20111130
  6. SODIUM CHLORIDE [Concomitant]
  7. SULFAMETHOXAZOLE [Suspect]
     Indication: WOUND INFECTION
     Route: 065
     Dates: start: 20111130, end: 20111204
  8. DIPHENHYDRAMINE HCL [Concomitant]
     Indication: PREMEDICATION
  9. TAXOTERE [Suspect]
     Indication: ADJUVANT THERAPY
     Dosage: FORM: FOR DRIP INFUSION
     Route: 041
     Dates: start: 20111108
  10. DECADRON [Concomitant]
     Indication: PREMEDICATION
     Dates: start: 20111130, end: 20111201
  11. TAXOTERE [Suspect]
     Dosage: FORM: FOR DRIP INFUSION
     Route: 041
     Dates: start: 20111130
  12. CYCLOPHOSPHAMIDE [Suspect]
     Indication: BREAST CANCER
     Route: 041
     Dates: start: 20111108
  13. CYCLOPHOSPHAMIDE [Suspect]
     Route: 041
     Dates: start: 20111130
  14. TAXOTERE [Suspect]
     Indication: BREAST CANCER
     Dosage: FORM: FOR DRIP INFUSION
     Route: 041
     Dates: start: 20111108

REACTIONS (6)
  - ERYTHEMA MULTIFORME [None]
  - CHOKING [None]
  - RASH [None]
  - PYREXIA [None]
  - PRURITUS [None]
  - URTICARIA [None]
